FAERS Safety Report 10014494 (Version 1)
Quarter: 2014Q1

REPORT INFORMATION
  Report Type: Spontaneous
  Country: US (occurrence: US)
  Receive Date: 20140317
  Receipt Date: 20140317
  Transmission Date: 20141002
  Serious: No
  Sender: FDA-Public Use
  Company Number: US-ASTRAZENECA-2014SE16323

PATIENT
  Sex: 0

DRUGS (4)
  1. SEROQUEL [Suspect]
     Route: 048
  2. BENZODIAZPINE [Concomitant]
     Dosage: UNKNOWN UNK
  3. OPIATES [Concomitant]
     Dosage: UNKNOWN UNK
  4. MULTIPLE MEDICATIONS (UNSPECIFIED) [Concomitant]
     Dosage: UNKNOWN UNK

REACTIONS (1)
  - Drug screen false positive [Unknown]
